FAERS Safety Report 9056228 (Version 1)
Quarter: 2013Q1

REPORT INFORMATION
  Report Type: Report from Study
  Country: CA (occurrence: CA)
  Receive Date: 20130205
  Receipt Date: 20130205
  Transmission Date: 20140127
  Serious: Yes (Hospitalization)
  Sender: FDA-Public Use
  Company Number: CA-JNJFOC-20130115052

PATIENT
  Sex: Male
  Weight: 67 kg

DRUGS (1)
  1. REMICADE [Suspect]
     Indication: COLITIS ULCERATIVE
     Route: 042
     Dates: end: 201205

REACTIONS (5)
  - Yellow skin [Unknown]
  - Pruritus generalised [Unknown]
  - Pyrexia [Unknown]
  - Haematemesis [Unknown]
  - Abdominal pain [Unknown]
